FAERS Safety Report 9729711 (Version 2)
Quarter: 2013Q4

REPORT INFORMATION
  Report Type: Spontaneous
  Country: US (occurrence: US)
  Receive Date: 20131204
  Receipt Date: 20131204
  Transmission Date: 20140711
  Serious: Yes (Life-Threatening, Hospitalization)
  Sender: FDA-Public Use
  Company Number: US-GILEAD-2009-0021005

PATIENT
  Sex: Female

DRUGS (24)
  1. LETAIRIS [Suspect]
     Indication: PULMONARY ARTERIAL HYPERTENSION
     Route: 048
     Dates: start: 20090213, end: 20090301
  2. REVATIO [Concomitant]
  3. ACCUPRIL [Concomitant]
  4. PRAVACHOL [Concomitant]
  5. LASIX [Concomitant]
  6. ASPIRIN [Concomitant]
  7. SPIRIVA [Concomitant]
  8. ADVAIR [Concomitant]
  9. GLIPIZIDE [Concomitant]
  10. METFORMIN [Concomitant]
  11. WELLBUTRIN SR [Concomitant]
  12. PROTONIX [Concomitant]
  13. SYNTHROID [Concomitant]
  14. OXYCONTIN [Concomitant]
  15. OXYIR [Concomitant]
  16. REQUIP [Concomitant]
  17. LEXAPRO [Concomitant]
  18. SUDAPHED [Concomitant]
  19. K-TAB [Concomitant]
  20. CITRACAL [Concomitant]
  21. MULTIVITAMIN [Concomitant]
  22. VITAMIN C [Concomitant]
  23. GLUCOSAMINE [Concomitant]
  24. ONCE A DAY [Concomitant]

REACTIONS (3)
  - Dyspnoea [Unknown]
  - Weight increased [Recovering/Resolving]
  - Constipation [Unknown]
